FAERS Safety Report 23922750 (Version 2)
Quarter: 2024Q3

REPORT INFORMATION
  Report Type: Spontaneous
  Country: US (occurrence: US)
  Receive Date: 20240531
  Receipt Date: 20240718
  Transmission Date: 20241017
  Serious: No
  Sender: GLAXOSMITHKLINE
  Company Number: US-GSKCCFUS-Case-02020384_AE-112092

PATIENT
  Sex: Female

DRUGS (1)
  1. BENLYSTA [Suspect]
     Active Substance: BELIMUMAB
     Indication: Systemic lupus erythematosus
     Dosage: 200 MG, WE (SITE OF INJECTION:THIGH)
     Route: 058
     Dates: start: 202312

REACTIONS (3)
  - Pain [Unknown]
  - Accidental exposure to product [Unknown]
  - Product complaint [Unknown]
